FAERS Safety Report 10610173 (Version 5)
Quarter: 2015Q2

REPORT INFORMATION
  Report Type: Spontaneous
  Country: US (occurrence: US)
  Receive Date: 20141126
  Receipt Date: 20150410
  Transmission Date: 20150821
  Serious: No
  Sender: FDA-Public Use
  Company Number: US-PFIZER INC-2014163850

PATIENT
  Age: 68 Year
  Sex: Female
  Weight: 86 kg

DRUGS (6)
  1. INLYTA [Suspect]
     Active Substance: AXITINIB
     Indication: RENAL CANCER
     Dosage: 7 MG, 2X/DAY, 7MG IN THE MORNING AND 7MG IN THE EVENING
     Dates: start: 201301
  2. INLYTA [Suspect]
     Active Substance: AXITINIB
     Dosage: 12 MG, DAILY (5 MG IN THE MORNING 7 MG IN THE EVENING)
  3. INLYTA [Suspect]
     Active Substance: AXITINIB
     Dosage: 7 MG, 2X/DAY, 7MG IN THE MORNING AND 7MG IN THE EVENING
  4. LEVOTHYROXINE SODIUM. [Concomitant]
     Active Substance: LEVOTHYROXINE SODIUM
     Dosage: 125 MG, DAILY
     Dates: start: 1976
  5. NEXIUM [Concomitant]
     Active Substance: ESOMEPRAZOLE MAGNESIUM
     Dosage: 40 MG, DAILY
     Dates: start: 2009
  6. FISH OIL [Concomitant]
     Active Substance: FISH OIL
     Dosage: UNK

REACTIONS (1)
  - Diarrhoea [Not Recovered/Not Resolved]

NARRATIVE: CASE EVENT DATE: 201408
